FAERS Safety Report 7824815-2 (Version None)
Quarter: 2011Q4

REPORT INFORMATION
  Report Type: 
  Country: None (occurrence: None)
  Receive Date: 20111019
  Receipt Date: 20110202
  Transmission Date: 20120403
  Serious: No
  Sender: FDA-Public Use
  Company Number: US-BRISTOL-MYERS SQUIBB COMPANY-15525348

PATIENT
  Age: 76 Year
  Sex: Female

DRUGS (1)
  1. AVALIDE [Suspect]
     Dosage: NIGHTLY ONE AT AROUND MIDNIGHT.COUPLE OF YEARS.

REACTIONS (3)
  - FATIGUE [None]
  - BLOOD PRESSURE FLUCTUATION [None]
  - DRY EYE [None]
